FAERS Safety Report 5829733-7 (Version None)
Quarter: 2008Q3

REPORT INFORMATION
  Report Type: 
  Country: None (occurrence: None)
  Receive Date: 20080801
  Receipt Date: 20080730
  Transmission Date: 20090109
  Serious: Yes (Life-Threatening, Hospitalization)
  Sender: FDA-Public Use
  Company Number: FR-BRISTOL-MYERS SQUIBB COMPANY-14256499

PATIENT
  Age: 67 Year
  Sex: Female

DRUGS (12)
  1. COAPROVEL TABS 150MG/12.5MG [Suspect]
     Dosage: 1 DOSAGE FORM = 150MG/12.5MG
     Dates: end: 20080110
  2. FUROSEMIDE [Suspect]
     Dates: end: 20080110
  3. GLIMEPIRIDE [Concomitant]
  4. METFORMIN HCL [Concomitant]
  5. LANTUS [Concomitant]
  6. LEVOTHYROXINE SODIUM [Concomitant]
  7. CEFTRIAXONE [Concomitant]
  8. CORDARONE [Concomitant]
  9. PANTOPRAZOLE SODIUM [Concomitant]
  10. ISOPTIN [Concomitant]
  11. TIORFAN [Concomitant]
  12. MORPHINE [Concomitant]

REACTIONS (6)
  - ATRIAL FIBRILLATION [None]
  - CIRCULATORY COLLAPSE [None]
  - GASTROENTERITIS [None]
  - HYPOGLYCAEMIC COMA [None]
  - LACTIC ACIDOSIS [None]
  - RENAL FAILURE ACUTE [None]
